FAERS Safety Report 9735411 (Version 1)
Quarter: 2013Q4

REPORT INFORMATION
  Report Type: Spontaneous
  Country: US (occurrence: None)
  Receive Date: 20131205
  Receipt Date: 20131205
  Transmission Date: 20140711
  Serious: Yes (Life-Threatening, Other)
  Sender: FDA-Public Use
  Company Number: None

PATIENT
  Sex: Female

DRUGS (5)
  1. KEPPRA [Suspect]
     Indication: CONVULSION
     Route: 048
     Dates: start: 2010, end: 2010
  2. LAMICTAL [Suspect]
  3. MVI PEDIATRIC [Concomitant]
  4. FISH OIL [Concomitant]
  5. VIT D [Concomitant]

REACTIONS (1)
  - Convulsion [None]
